FAERS Safety Report 11420286 (Version 1)
Quarter: 2015Q3

REPORT INFORMATION
  Report Type: Spontaneous
  Country: CN (occurrence: CN)
  Receive Date: 20150826
  Receipt Date: 20150826
  Transmission Date: 20151125
  Serious: Yes (Other)
  Sender: FDA-Public Use
  Company Number: CN-BAYER-2015-402210

PATIENT

DRUGS (1)
  1. GLUCOBAY [Suspect]
     Active Substance: ACARBOSE
     Dosage: 50 MG, TID
     Route: 048

REACTIONS (4)
  - Faeces discoloured [Recovering/Resolving]
  - Gastrointestinal mucosal exfoliation [Recovering/Resolving]
  - Flatulence [Recovering/Resolving]
  - Haematochezia [Recovering/Resolving]
